FAERS Safety Report 16149919 (Version 3)
Quarter: 2019Q2

REPORT INFORMATION
  Report Type: Spontaneous
  Country: US (occurrence: US)
  Receive Date: 20190403
  Receipt Date: 20190619
  Transmission Date: 20190711
  Serious: Yes (Other)
  Sender: FDA-Public Use
  Company Number: US-BEH-2019101083

PATIENT
  Age: 16 Year
  Sex: Male

DRUGS (7)
  1. IDELVION [Suspect]
     Active Substance: COAGULATION FACTOR IX RECOMBINANT HUMAN
     Dosage: 3983 UNK
     Route: 065
     Dates: start: 20190303
  2. IDELVION [Suspect]
     Active Substance: COAGULATION FACTOR IX RECOMBINANT HUMAN
     Indication: MOUTH HAEMORRHAGE
     Dosage: UNK
     Route: 065
  3. IDELVION [Suspect]
     Active Substance: COAGULATION FACTOR IX RECOMBINANT HUMAN
     Dosage: 3983 UNK
     Route: 065
     Dates: start: 20190311
  4. IDELVION [Suspect]
     Active Substance: COAGULATION FACTOR IX RECOMBINANT HUMAN
     Dosage: 3636 UNK
     Route: 065
     Dates: start: 20190405
  5. IDELVION [Suspect]
     Active Substance: COAGULATION FACTOR IX RECOMBINANT HUMAN
     Indication: PRODUCT USED FOR UNKNOWN INDICATION
     Dosage: 4000 IU, UNK
     Route: 065
     Dates: start: 20180209
  6. IDELVION [Suspect]
     Active Substance: COAGULATION FACTOR IX RECOMBINANT HUMAN
     Dosage: UNK
     Route: 065
     Dates: start: 20190226
  7. IDELVION [Suspect]
     Active Substance: COAGULATION FACTOR IX RECOMBINANT HUMAN
     Dosage: 3636 UNK
     Route: 065
     Dates: start: 20190228

REACTIONS (4)
  - Mouth haemorrhage [Recovered/Resolved]
  - Device issue [Unknown]
  - Drug ineffective [Unknown]
  - Device operational issue [Unknown]

NARRATIVE: CASE EVENT DATE: 20190228
